FAERS Safety Report 6179654-8 (Version None)
Quarter: 2009Q2

REPORT INFORMATION
  Report Type: 
  Country: None (occurrence: None)
  Receive Date: 20090505
  Receipt Date: 20090423
  Transmission Date: 20091009
  Serious: Yes (Other)
  Sender: FDA-Public Use
  Company Number: PHHY2009IT15323

PATIENT
  Age: 59 Year
  Sex: Female

DRUGS (2)
  1. ZOLEDRONIC ACID [Suspect]
     Indication: ACUTE MYELOID LEUKAEMIA
     Dosage: CUMULATIVE DOSE 164 MG
  2. DEHYDROEPIANDROSTERONE [Concomitant]

REACTIONS (4)
  - JAW OPERATION [None]
  - ORAL PAIN [None]
  - OSTEONECROSIS [None]
  - TOOTH EXTRACTION [None]
